FAERS Safety Report 11491903 (Version 1)
Quarter: 2015Q3

REPORT INFORMATION
  Report Type: Spontaneous
  Country: US (occurrence: None)
  Receive Date: 20150909
  Receipt Date: 20150909
  Transmission Date: 20151125
  Serious: Yes (Hospitalization)
  Sender: FDA-Public Use
  Company Number: None

PATIENT
  Age: 65 Year
  Sex: Female
  Weight: 92.53 kg

DRUGS (9)
  1. INVANZ [Suspect]
     Active Substance: ERTAPENEM SODIUM
     Indication: BACTERAEMIA
     Route: 042
     Dates: start: 20150901, end: 20150903
  2. VITAMIN B COMPLEX WITH C [Concomitant]
     Active Substance: ASCORBIC ACID\CALCIUM PANTOTHENATE\CYANOCOBALAMIN\NIACINAMIDE\PYRIDOXINE HYDROCHLORIDE\RIBOFLAVIN\THIAMINE MONONITRATE
  3. METFORMIN [Concomitant]
     Active Substance: METFORMIN HYDROCHLORIDE
  4. LACTULOSE. [Concomitant]
     Active Substance: LACTULOSE
  5. INVANZ [Suspect]
     Active Substance: ERTAPENEM SODIUM
     Indication: URINARY TRACT INFECTION
     Route: 042
     Dates: start: 20150901, end: 20150903
  6. FOLIC ACID. [Concomitant]
     Active Substance: FOLIC ACID
  7. RHODIOLA [Concomitant]
     Active Substance: HERBALS
  8. SPIRONOLACTONE. [Concomitant]
     Active Substance: SPIRONOLACTONE
  9. PROPRANOL [Concomitant]
     Active Substance: PROPRANOLOL HYDROCHLORIDE

REACTIONS (1)
  - Seizure [None]

NARRATIVE: CASE EVENT DATE: 20150903
